FAERS Safety Report 7008864-2 (Version None)
Quarter: 2010Q3

REPORT INFORMATION
  Report Type: 
  Country: None (occurrence: None)
  Receive Date: 20100923
  Receipt Date: 20100916
  Transmission Date: 20110219
  Serious: Yes (Other)
  Sender: FDA-Public Use
  Company Number: US-BIOGENIDEC-2010BI026756

PATIENT
  Age: 27 Year
  Sex: Female

DRUGS (5)
  1. TYSABRI [Suspect]
     Indication: MULTIPLE SCLEROSIS
     Route: 042
     Dates: start: 20071031, end: 20090113
  2. TYSABRI [Suspect]
     Route: 042
     Dates: start: 20091210
  3. PRENATAL VITAMINS [Concomitant]
  4. NEXIUM [Concomitant]
  5. PREDNISONE [Concomitant]

REACTIONS (2)
  - BREECH PRESENTATION [None]
  - PREGNANCY [None]
